FAERS Safety Report 23877409 (Version 1)
Quarter: 2024Q2

REPORT INFORMATION
  Report Type: Spontaneous
  Country: ZA (occurrence: ZA)
  Receive Date: 20240521
  Receipt Date: 20240521
  Transmission Date: 20240716
  Serious: Yes (Hospitalization, Other)
  Sender: FDA-Public Use
  Company Number: ZA-002147023-NVSC2024ZA106241

PATIENT
  Age: 11 Year
  Sex: Male
  Weight: 39.7 kg

DRUGS (3)
  1. TEGRETOL XR [Suspect]
     Active Substance: CARBAMAZEPINE
     Indication: Partial seizures
     Dosage: 200 MG
     Route: 048
     Dates: start: 202212, end: 202212
  2. TEGRETOL XR [Suspect]
     Active Substance: CARBAMAZEPINE
     Dosage: 400 MG
     Route: 048
     Dates: start: 202212, end: 202212
  3. CLOBAZAM [Concomitant]
     Active Substance: CLOBAZAM
     Indication: Epilepsy
     Dosage: 10 MG
     Route: 048
     Dates: start: 202303

REACTIONS (2)
  - Blood testosterone increased [Recovering/Resolving]
  - Priapism [Recovering/Resolving]

NARRATIVE: CASE EVENT DATE: 20231106
